FAERS Safety Report 26166151 (Version 1)
Quarter: 2025Q4

REPORT INFORMATION
  Report Type: Spontaneous
  Country: US (occurrence: US)
  Receive Date: 20251216
  Receipt Date: 20251216
  Transmission Date: 20260117
  Serious: Yes (Hospitalization)
  Sender: BIOGEN
  Company Number: US-BIOGEN-2089122

PATIENT
  Age: 49 Year
  Sex: Female

DRUGS (3)
  1. TYSABRI [Suspect]
     Active Substance: NATALIZUMAB
     Indication: Multiple sclerosis
     Dates: start: 20081202, end: 20250724
  2. TYSABRI [Suspect]
     Active Substance: NATALIZUMAB
  3. TYSABRI [Suspect]
     Active Substance: NATALIZUMAB
     Dates: start: 20081202, end: 20250918

REACTIONS (2)
  - Multiple sclerosis relapse [Recovering/Resolving]
  - Vision blurred [Unknown]

NARRATIVE: CASE EVENT DATE: 20250701
